FAERS Safety Report 9832852 (Version 2)
Quarter: 2014Q1

REPORT INFORMATION
  Report Type: Spontaneous
  Country: US (occurrence: US)
  Receive Date: 20140121
  Receipt Date: 20140324
  Transmission Date: 20141002
  Serious: No
  Sender: FDA-Public Use
  Company Number: US-TEVA-457773USA

PATIENT
  Age: 17 Year
  Sex: Female
  Weight: 64.92 kg

DRUGS (2)
  1. PLAN B ONE-STEP [Suspect]
     Indication: POST COITAL CONTRACEPTION
     Dosage: 1.5 MILLIGRAM DAILY;
     Route: 048
     Dates: start: 20140106, end: 20140106
  2. IBUPROFEN [Concomitant]
     Indication: HEADACHE

REACTIONS (1)
  - Menorrhagia [Recovered/Resolved]
